FAERS Safety Report 18870919 (Version 1)
Quarter: 2021Q1

REPORT INFORMATION
  Report Type: Spontaneous
  Country: AU (occurrence: AU)
  Receive Date: 20210209
  Receipt Date: 20210209
  Transmission Date: 20210420
  Serious: Yes (Other)
  Sender: FDA-Public Use
  Company Number: AU-BAXTER-2021BAX002424

PATIENT
  Age: 29 Year
  Sex: Female

DRUGS (2)
  1. GENRX MIDAZOLAM/MIDAZOLAM APOTEX/APO?MIDAZOLAM [Suspect]
     Active Substance: MIDAZOLAM HYDROCHLORIDE
     Indication: PRODUCT USED FOR UNKNOWN INDICATION
     Route: 065
  2. BACLOFEN. [Suspect]
     Active Substance: BACLOFEN
     Indication: PRODUCT USED FOR UNKNOWN INDICATION
     Route: 065

REACTIONS (9)
  - Apnoea [Recovered/Resolved]
  - Stupor [Recovered/Resolved]
  - Myoclonus [Recovered/Resolved]
  - Metabolic encephalopathy [Recovered/Resolved]
  - Depressed level of consciousness [Recovered/Resolved]
  - Drug ineffective [Recovered/Resolved]
  - Intentional overdose [Recovered/Resolved]
  - Neurotoxicity [Recovered/Resolved]
  - Respiratory depression [Recovered/Resolved]
